FAERS Safety Report 5691779-X (Version None)
Quarter: 2008Q2

REPORT INFORMATION
  Report Type: 
  Country: None (occurrence: None)
  Receive Date: 20080401
  Receipt Date: 20080401
  Transmission Date: 20081010
  Serious: Yes (Other)
  Sender: FDA-Public Use
  Company Number: None

PATIENT
  Sex: Female
  Weight: 54.8852 kg

DRUGS (1)
  1. SINGULAIR [Suspect]
     Indication: ASTHMA EXERCISE INDUCED
     Dosage: 10 MG PILL ONCE DAILY PO
     Route: 048
     Dates: start: 20071215, end: 20080328

REACTIONS (5)
  - APATHY [None]
  - CRYING [None]
  - EDUCATIONAL PROBLEM [None]
  - LETHARGY [None]
  - SOCIAL AVOIDANT BEHAVIOUR [None]
